FAERS Safety Report 5739141-5 (Version None)
Quarter: 2008Q2

REPORT INFORMATION
  Report Type: 
  Country: None (occurrence: None)
  Receive Date: 20080515
  Receipt Date: 20080513
  Transmission Date: 20081010
  Serious: Yes (Other)
  Sender: FDA-Public Use
  Company Number: A0728127A

PATIENT
  Age: 65 Year
  Sex: Male
  Weight: 70 kg

DRUGS (4)
  1. SERETIDE [Suspect]
     Indication: BRONCHITIS
     Route: 055
     Dates: start: 20010101
  2. CAPTOPRIL [Concomitant]
     Dosage: 25MG FOUR TIMES PER DAY
     Route: 065
     Dates: start: 19930101
  3. THEOPHYLLINE [Concomitant]
     Dosage: 100MG PER DAY
     Route: 048
     Dates: start: 19980101
  4. HYDROCHLOROTHIAZIDE [Concomitant]

REACTIONS (2)
  - LABORATORY TEST ABNORMAL [None]
  - THROMBOCYTOPENIA [None]
